FAERS Safety Report 11130909 (Version 6)
Quarter: 2015Q2

REPORT INFORMATION
  Report Type: Spontaneous
  Country: JP (occurrence: JP)
  Receive Date: 20150522
  Receipt Date: 20150624
  Transmission Date: 20150821
  Serious: Yes (Hospitalization, Other)
  Sender: FDA-Public Use
  Company Number: JP-009507513-1505JPN006968

PATIENT
  Age: 38 Year
  Sex: Female
  Weight: 50 kg

DRUGS (3)
  1. MERCILON [Suspect]
     Active Substance: DESOGESTREL\ETHINYL ESTRADIOL
     Indication: CONTRACEPTION
     Dosage: ONE TABLET ONCE A DAY; IMPORTED FROM BRAZIL
     Route: 048
     Dates: start: 1995, end: 201503
  2. OXATOMIDE [Suspect]
     Active Substance: OXATOMIDE
     Indication: UPPER RESPIRATORY TRACT INFLAMMATION
     Dosage: 30 MG, TWICE A DAY (IN THE MORNING AND EVENING)
     Route: 048
     Dates: start: 20150314, end: 20150406
  3. MERCILON 28 [Suspect]
     Active Substance: DESOGESTREL\ETHINYL ESTRADIOL
     Indication: CONTRACEPTION
     Dosage: DAILY DOSE UNKNOWN, QD, PURCHASED VIA AN INTERNET SITE OF SINGAPORE. PRODUCT FROM THAILAND
     Route: 048
     Dates: start: 201503, end: 20150406

REACTIONS (1)
  - Hepatic failure [Recovered/Resolved]

NARRATIVE: CASE EVENT DATE: 20150329
